FAERS Safety Report 5337527-4 (Version None)
Quarter: 2007Q2

REPORT INFORMATION
  Report Type: 
  Country: None (occurrence: None)
  Receive Date: 20070524
  Receipt Date: 20070515
  Transmission Date: 20071010
  Serious: Yes (Hospitalization)
  Sender: FDA-Public Use
  Company Number: 2007BI002982

PATIENT
  Age: 49 Year
  Sex: Male

DRUGS (1)
  1. AVONEX [Suspect]
     Indication: MULTIPLE SCLEROSIS
     Dosage: 30 UG;QW;IM
     Route: 030
     Dates: start: 20030101

REACTIONS (7)
  - CHILLS [None]
  - DYSTONIA [None]
  - INFLUENZA LIKE ILLNESS [None]
  - INTERVERTEBRAL DISC DISORDER [None]
  - NERVE COMPRESSION [None]
  - SURGICAL PROCEDURE REPEATED [None]
  - VOMITING [None]
